FAERS Safety Report 6013336-8 (Version None)
Quarter: 2008Q4

REPORT INFORMATION
  Report Type: 
  Country: None (occurrence: None)
  Receive Date: 20081219
  Receipt Date: 20081212
  Transmission Date: 20090506
  Serious: Yes (Hospitalization, Disabling)
  Sender: FDA-Public Use
  Company Number: US-KINGPHARMUSA00001-K200801403

PATIENT
  Sex: Male
  Weight: 100.68 kg

DRUGS (9)
  1. ALTACE [Suspect]
     Dosage: 10 MG, QD
     Dates: end: 20081024
  2. INSULIN GLARGINE [Suspect]
     Indication: TYPE 2 DIABETES MELLITUS
     Dosage: 30 U, BID
     Route: 058
     Dates: start: 20070101
  3. VYTORIN [Suspect]
     Dosage: 20/40 MG
     Dates: end: 20081024
  4. METFORMIN HCL [Concomitant]
     Dosage: UNK
  5. CLOPIDOGREL [Concomitant]
     Dosage: UNK
  6. FLURAZEPAM [Concomitant]
     Dosage: UNK
  7. GABAPENTIN [Concomitant]
     Dosage: UNK
  8. TAMSULOSIN HCL [Concomitant]
     Dosage: UNK
  9. ATORVASTATIN CALCIUM [Concomitant]
     Dosage: UNK
     Dates: end: 20080801

REACTIONS (3)
  - GAIT DISTURBANCE [None]
  - LOSS OF CONTROL OF LEGS [None]
  - MUSCULOSKELETAL DISORDER [None]
